FAERS Safety Report 9075301 (Version 1)
Quarter: 2013Q1

REPORT INFORMATION
  Report Type: Report from Study
  Country: US (occurrence: US)
  Receive Date: 20130128
  Receipt Date: 20130128
  Transmission Date: 20140127
  Serious: No
  Sender: FDA-Public Use
  Company Number: US-ABBOTT-12P-163-0897820-00

PATIENT
  Age: 17 Year
  Sex: Female

DRUGS (2)
  1. HUMIRA 40 MG/ 0.8 ML PRE-FILLED SYRINGE [Suspect]
     Indication: ANKYLOSING SPONDYLITIS
     Dates: start: 20120110
  2. INDOCIN [Concomitant]
     Indication: ANTIINFLAMMATORY THERAPY
     Dosage: 3 PILLS

REACTIONS (1)
  - Injection site pain [Recovered/Resolved]
